FAERS Safety Report 8812783 (Version 3)
Quarter: 2012Q4

REPORT INFORMATION
  Report Type: 
  Country: JP (occurrence: JP)
  Receive Date: 20120927
  Receipt Date: 20121119
  Transmission Date: 20130627
  Serious: Yes (Other)
  Sender: FDA-Public Use
  Company Number: JP-JNJFOC-20120909008

PATIENT
  Age: 39 Year
  Sex: Male

DRUGS (5)
  1. INVEGA [Suspect]
     Indication: SCHIZOPHRENIA
     Route: 048
  2. INVEGA [Suspect]
     Indication: SCHIZOPHRENIA
     Route: 048
  3. INVEGA [Suspect]
     Indication: SCHIZOPHRENIA
     Route: 048
  4. INVEGA [Suspect]
     Indication: SCHIZOPHRENIA
     Route: 048
  5. TS-1 [Suspect]
     Indication: COLON CANCER
     Route: 048

REACTIONS (1)
  - Schizophrenia [Recovered/Resolved]
